FAERS Safety Report 18877859 (Version 1)
Quarter: 2021Q1

REPORT INFORMATION
  Report Type: Spontaneous
  Country: CA (occurrence: CA)
  Receive Date: 20210211
  Receipt Date: 20210211
  Transmission Date: 20210420
  Serious: Yes (Life-Threatening, Hospitalization)
  Sender: FDA-Public Use
  Company Number: CA-TEVA-2021-CA-1878421

PATIENT
  Age: 3 Year
  Sex: Male
  Weight: 20 kg

DRUGS (3)
  1. TOPOTECAN [Suspect]
     Active Substance: TOPOTECAN HYDROCHLORIDE
     Indication: NEUROBLASTOMA
     Route: 065
  2. CYCLOPHOSPHAMIDE. [Suspect]
     Active Substance: CYCLOPHOSPHAMIDE
     Indication: NEUROBLASTOMA
     Route: 065
  3. XALKORI [Suspect]
     Active Substance: CRIZOTINIB
     Indication: NEUROBLASTOMA

REACTIONS (1)
  - Febrile neutropenia [Recovering/Resolving]
